FAERS Safety Report 6656302-1 (Version None)
Quarter: 2010Q1

REPORT INFORMATION
  Report Type: 
  Country: None (occurrence: None)
  Receive Date: 20100317
  Receipt Date: 20091117
  Transmission Date: 20100710
  Serious: No
  Sender: FDA-Public Use
  Company Number: DSA_42043_2009

PATIENT
  Sex: Male

DRUGS (13)
  1. XENAZINE [Suspect]
     Indication: DYSTONIA
     Dosage: (DF), (25 MG QD ORAL), (DF)
     Route: 048
     Dates: start: 20090210, end: 20090305
  2. XENAZINE [Suspect]
     Indication: DYSTONIA
     Dosage: (DF), (25 MG QD ORAL), (DF)
     Route: 048
     Dates: start: 20090924, end: 20091101
  3. LAMICTAL [Concomitant]
  4. EFFEXOR [Concomitant]
  5. BACLOFEN [Concomitant]
  6. ZANAFLEX [Concomitant]
  7. PRINIVIL [Concomitant]
  8. PHENYTEK [Concomitant]
  9. TRIHEXYPHENIDYL HCL [Concomitant]
  10. LOPRESSOR [Concomitant]
  11. POTASSIUM [Concomitant]
  12. SINGULAIR [Concomitant]
  13. SANCTURA [Concomitant]

REACTIONS (4)
  - AGGRESSION [None]
  - AGITATION [None]
  - ANXIETY [None]
  - DRUG INEFFECTIVE FOR UNAPPROVED INDICATION [None]
